FAERS Safety Report 8056185-1 (Version None)
Quarter: 2011Q4

REPORT INFORMATION
  Report Type: 
  Country: None (occurrence: None)
  Receive Date: 20111219
  Receipt Date: 20110708
  Transmission Date: 20120403
  Serious: Yes (Life-Threatening, Hospitalization, Disabling)
  Sender: FDA-Public Use
  Company Number: WAES 1107USA01228

PATIENT
  Age: 65 Year
  Sex: Female
  Weight: 83.4619 kg

DRUGS (7)
  1. LEVEMIR [Concomitant]
  2. GLIMEPIRIDE [Concomitant]
  3. METFORMIN [Concomitant]
  4. JANUVIA [Suspect]
     Dosage: 100 MG/DAILY/PO
     Route: 048
     Dates: end: 20101006
  5. ASPIRIN [Concomitant]
  6. TOPROL-XL [Concomitant]
  7. RANITIDINE [Concomitant]

REACTIONS (1)
  - PANCREATITIS [None]
